FAERS Safety Report 7587410-9 (Version None)
Quarter: 2011Q3

REPORT INFORMATION
  Report Type: 
  Country: None (occurrence: None)
  Receive Date: 20110704
  Receipt Date: 20110629
  Transmission Date: 20111222
  Serious: Yes (Other)
  Sender: FDA-Public Use
  Company Number: DK-BRISTOL-MYERS SQUIBB COMPANY-15785918

PATIENT
  Age: 17 Year
  Sex: Female

DRUGS (10)
  1. ADRIAMYCIN PFS [Suspect]
     Indication: HODGKIN'S DISEASE
     Route: 042
     Dates: start: 20060508, end: 20060619
  2. CYCLOPHOSPHAMIDE [Suspect]
     Indication: HODGKIN'S DISEASE
     Dates: start: 20060703, end: 20061003
  3. MESNA [Suspect]
     Indication: HODGKIN'S DISEASE
     Route: 042
     Dates: start: 20060925, end: 20061003
  4. PROCARBAZINE HYDROCHLORIDE [Suspect]
     Indication: HODGKIN'S DISEASE
     Dosage: NATULANAR
     Route: 048
     Dates: start: 20060703, end: 20061010
  5. POTASSIUM CHLORIDE [Concomitant]
  6. ONCOVIN [Suspect]
     Indication: HODGKIN'S DISEASE
     Route: 042
     Dates: start: 20060508, end: 20061003
  7. NATRIUMFLUORID [Concomitant]
  8. ETOPOSIDE [Suspect]
     Indication: HODGKIN'S DISEASE
     Route: 042
     Dates: start: 20060508, end: 20060609
  9. PREDNISONE [Suspect]
     Indication: HODGKIN'S DISEASE
     Route: 048
     Dates: start: 20060508, end: 20061010
  10. GLUCOSE [Concomitant]
     Dosage: GLUCOSE MONOHYDRATE

REACTIONS (6)
  - OSTEONECROSIS [None]
  - ARTHRALGIA [None]
  - BACK PAIN [None]
  - FATIGUE [None]
  - PAIN IN EXTREMITY [None]
  - INTERVERTEBRAL DISC PROTRUSION [None]
